FAERS Safety Report 6937200-2 (Version None)
Quarter: 2010Q3

REPORT INFORMATION
  Report Type: 
  Country: None (occurrence: None)
  Receive Date: 20100823
  Receipt Date: 20100816
  Transmission Date: 20110219
  Serious: Yes (Other)
  Sender: FDA-Public Use
  Company Number: A0876120A

PATIENT
  Age: 55 Year
  Sex: Female

DRUGS (2)
  1. LAMICTAL [Suspect]
     Indication: BIPOLAR DISORDER
     Dosage: 25MG PER DAY
     Route: 048
     Dates: start: 20100501, end: 20100601
  2. PREMARIN [Concomitant]

REACTIONS (10)
  - ALLERGY TO ARTHROPOD BITE [None]
  - ARTHRALGIA [None]
  - CONTUSION [None]
  - EAR PAIN [None]
  - INSOMNIA [None]
  - MYALGIA [None]
  - ORAL HERPES [None]
  - SINUSITIS [None]
  - STEVENS-JOHNSON SYNDROME [None]
  - SWELLING [None]
